FAERS Safety Report 11993813 (Version 2)
Quarter: 2016Q1

REPORT INFORMATION
  Report Type: Spontaneous
  Country: US (occurrence: US)
  Receive Date: 20160203
  Receipt Date: 20160209
  Transmission Date: 20160526
  Serious: Yes (Other)
  Sender: FDA-Public Use
  Company Number: US-ASTELLAS-2016US003945

PATIENT
  Sex: Male

DRUGS (1)
  1. TARCEVA [Suspect]
     Active Substance: ERLOTINIB HYDROCHLORIDE
     Indication: TUMOUR PAIN
     Dosage: 1 DF (150 MG), ONCE DAILY
     Route: 048
     Dates: start: 20141218

REACTIONS (5)
  - Neck pain [Unknown]
  - Ear neoplasm [Unknown]
  - Hypokalaemia [Unknown]
  - Fatigue [Unknown]
  - Back pain [Unknown]
